FAERS Safety Report 7277553-1 (Version None)
Quarter: 2010Q4

REPORT INFORMATION
  Report Type: 
  Country: None (occurrence: None)
  Receive Date: 20101201
  Receipt Date: 20091223
  Transmission Date: 20110411
  Serious: Yes (Other)
  Sender: FDA-Public Use
  Company Number: 292841

PATIENT
  Age: 48 Year
  Sex: Male
  Weight: 74.8 kg

DRUGS (5)
  1. NOVOLOG [Suspect]
     Indication: DIABETES MELLITUS
     Dosage: SUBCUTANEOUS
     Route: 058
     Dates: start: 20090401
  2. LISINOPRIL [Concomitant]
  3. NEXIUM [Concomitant]
  4. VITAMINS (ASCORBIC ACID, ERGOCALCIFEROL, NICOTINAMIDE, RETINOL, RIBOFL [Concomitant]
  5. PEPCID [Concomitant]

REACTIONS (1)
  - HYPERSENSITIVITY [None]
